FAERS Safety Report 9012540 (Version 1)
Quarter: 2013Q1

REPORT INFORMATION
  Report Type: Spontaneous
  Country: US (occurrence: US)
  Receive Date: 20130114
  Receipt Date: 20130114
  Transmission Date: 20140127
  Serious: Yes (Other)
  Sender: FDA-Public Use
  Company Number: US-009507513-1301USA003668

PATIENT
  Age: 10 Year
  Sex: Male

DRUGS (1)
  1. SINGULAIR [Suspect]
     Indication: HYPERSENSITIVITY
     Dosage: 5 MG, QD
     Route: 048

REACTIONS (7)
  - Anxiety [Unknown]
  - Abnormal dreams [Unknown]
  - Somnambulism [Unknown]
  - Insomnia [Unknown]
  - Hallucination [Unknown]
  - Depression [Unknown]
  - Confusional state [Unknown]
